FAERS Safety Report 4510463-9 (Version None)
Quarter: 2004Q4

REPORT INFORMATION
  Report Type: 
  Country: None (occurrence: None)
  Receive Date: 20041124
  Receipt Date: 20041112
  Transmission Date: 20050328
  Serious: Yes (Life-Threatening)
  Sender: FDA-Public Use
  Company Number: FR-GLAXOSMITHKLINE-B0351272A

PATIENT
  Age: 7 Year
  Sex: Male
  Weight: 20 kg

DRUGS (8)
  1. ZOVIRAX [Suspect]
     Indication: ANTIVIRAL PROPHYLAXIS
     Dosage: 450MG PER DAY
     Route: 042
     Dates: start: 20040926, end: 20040930
  2. NUBAIN [Suspect]
     Dosage: 24MG PER DAY
     Route: 042
     Dates: start: 20040925, end: 20041011
  3. METHOTREXATE [Suspect]
     Dosage: 2.65G PER DAY
     Route: 042
     Dates: start: 20040919, end: 20040920
  4. TAZOCILLINE [Concomitant]
     Indication: INFECTION PROPHYLAXIS
     Dosage: 6MG PER DAY
     Route: 042
     Dates: start: 20040925, end: 20041011
  5. AMIKLIN [Concomitant]
     Indication: INFECTION PROPHYLAXIS
     Dosage: 300MG PER DAY
     Route: 042
     Dates: start: 20040925, end: 20040930
  6. VANCOMYCIN [Concomitant]
     Indication: INFECTION PROPHYLAXIS
     Dosage: 800MG PER DAY
     Route: 042
     Dates: start: 20040926, end: 20041011
  7. ONCOVIN [Concomitant]
     Route: 042
     Dates: start: 20040921
  8. AMBISOME [Concomitant]
     Indication: ANTIFUNGAL PROPHYLAXIS
     Route: 042

REACTIONS (4)
  - COMA [None]
  - CONVULSION [None]
  - ENCEPHALITIS TOXIC [None]
  - HYPONATRAEMIA [None]
